FAERS Safety Report 13912823 (Version 2)
Quarter: 2017Q3

REPORT INFORMATION
  Report Type: Spontaneous
  Country: JP (occurrence: JP)
  Receive Date: 20170828
  Receipt Date: 20170911
  Transmission Date: 20171127
  Serious: Yes (Death)
  Sender: FDA-Public Use
  Company Number: JP-NOVOPROD-559850

PATIENT
  Age: 85 Year
  Sex: Female
  Weight: 49 kg

DRUGS (7)
  1. VANCOMYCIN HCL [Concomitant]
     Active Substance: VANCOMYCIN HYDROCHLORIDE
     Indication: STAPHYLOCOCCAL INFECTION
     Dosage: 0.5 ML, QD
     Route: 042
     Dates: start: 20170815, end: 20170815
  2. CALCIUM CHLORIDE. [Concomitant]
     Active Substance: CALCIUM CHLORIDE
     Dosage: UNK
     Route: 042
     Dates: start: 20170815, end: 20170815
  3. NOVOSEVEN [Suspect]
     Active Substance: COAGULATION FACTOR VIIA RECOMBINANT HUMAN
     Indication: HAEMOSTASIS
     Dosage: 5 MG, QD
     Route: 042
     Dates: start: 20170815, end: 20170815
  4. GLUCOSE [Concomitant]
     Active Substance: DEXTROSE
     Dosage: 20 ML, QD
     Route: 042
     Dates: start: 20170815, end: 20170815
  5. THAM SET [Concomitant]
     Indication: ACIDOSIS
     Dosage: 520 ML, QD
     Route: 042
     Dates: start: 20170815, end: 20170815
  6. TAKEPRON [Concomitant]
     Active Substance: LANSOPRAZOLE
     Indication: GASTRIC ULCER
     Dosage: 30 MG, QD
     Route: 042
     Dates: start: 20170815, end: 20170815
  7. ISOTONIC SODIUM CHLORIDE SOLUTION [Concomitant]
     Active Substance: SODIUM CHLORIDE
     Dosage: UNK
     Route: 042
     Dates: start: 20170815, end: 20170815

REACTIONS (3)
  - Multiple organ dysfunction syndrome [Fatal]
  - Off label use [Unknown]
  - Disseminated intravascular coagulation [Fatal]

NARRATIVE: CASE EVENT DATE: 20170815
